FAERS Safety Report 25553490 (Version 1)
Quarter: 2025Q3

REPORT INFORMATION
  Report Type: Spontaneous
  Country: TW (occurrence: TW)
  Receive Date: 20250715
  Receipt Date: 20250715
  Transmission Date: 20251020
  Serious: Yes (Death)
  Sender: AMGEN
  Company Number: TW-AMGEN-TWNSP2025137043

PATIENT

DRUGS (1)
  1. ROMOSOZUMAB [Suspect]
     Active Substance: ROMOSOZUMAB
     Indication: Osteoporosis
     Dosage: UNK UNK, QMO
     Route: 065

REACTIONS (1)
  - Death [Fatal]
